FAERS Safety Report 5551684-6 (Version None)
Quarter: 2007Q4

REPORT INFORMATION
  Report Type: 
  Country: None (occurrence: None)
  Receive Date: 20071212
  Receipt Date: 20071130
  Transmission Date: 20080405
  Serious: Yes (Other)
  Sender: FDA-Public Use
  Company Number: US-PFIZER INC-2007086412

PATIENT
  Sex: Female

DRUGS (1)
  1. CHANTIX [Suspect]
     Indication: SMOKER
     Route: 048
     Dates: start: 20071001, end: 20071001

REACTIONS (4)
  - HYPERSENSITIVITY [None]
  - HYPOAESTHESIA ORAL [None]
  - PARAESTHESIA [None]
  - PRURITUS GENERALISED [None]
